FAERS Safety Report 22843116 (Version 3)
Quarter: 2025Q3

REPORT INFORMATION
  Report Type: Report from Study
  Country: US (occurrence: US)
  Receive Date: 20230821
  Receipt Date: 20250915
  Transmission Date: 20251021
  Serious: Yes (Hospitalization, Other)
  Sender: TAKEDA
  Company Number: US-TAKEDA-2023TUS003023

PATIENT
  Age: 69 Year
  Sex: Female

DRUGS (2)
  1. HUMAN IMMUNOGLOBULIN G [Suspect]
     Active Substance: HUMAN IMMUNOGLOBULIN G
     Indication: Primary immunodeficiency syndrome
  2. HUMAN IMMUNOGLOBULIN G [Suspect]
     Active Substance: HUMAN IMMUNOGLOBULIN G
     Indication: IgG deficiency

REACTIONS (14)
  - Blood pressure abnormal [Unknown]
  - Loss of consciousness [Unknown]
  - Fatigue [Unknown]
  - Drug hypersensitivity [Unknown]
  - Renal disorder [Unknown]
  - Psychiatric symptom [Unknown]
  - Lung disorder [Unknown]
  - Drug ineffective [Unknown]
  - Impaired quality of life [Unknown]
  - Illness [Unknown]
  - Feeling abnormal [Unknown]
  - Arthralgia [Unknown]
  - Nausea [Unknown]
  - Product use issue [Unknown]

NARRATIVE: CASE EVENT DATE: 20250912
